FAERS Safety Report 18310075 (Version 2)
Quarter: 2020Q4

REPORT INFORMATION
  Report Type: Spontaneous
  Country: US (occurrence: US)
  Receive Date: 20200924
  Receipt Date: 20201012
  Transmission Date: 20210113
  Serious: No
  Sender: FDA-Public Use
  Company Number: US-PFIZER INC-2020368403

PATIENT
  Age: 58 Year
  Sex: Female

DRUGS (1)
  1. RELPAX [Suspect]
     Active Substance: ELETRIPTAN HYDROBROMIDE
     Indication: MIGRAINE
     Dosage: 40 MG (ON ONSET OF MIGRAINE AND MAY REPEAT DOSE X 1 IF NOT IMPROVED 2 HOURS AFTER FIRST DOSE)
     Route: 048

REACTIONS (1)
  - Memory impairment [Unknown]
